FAERS Safety Report 5516264-7 (Version None)
Quarter: 2007Q4

REPORT INFORMATION
  Report Type: 
  Country: None (occurrence: None)
  Receive Date: 20071114
  Receipt Date: 20070116
  Transmission Date: 20080405
  Serious: No
  Sender: FDA-Public Use
  Company Number: A0635650A

PATIENT
  Age: 41 Year
  Sex: Female

DRUGS (3)
  1. COMMIT [Suspect]
  2. EQUATE NTS 21MG [Suspect]
     Dates: start: 20070101, end: 20070114
  3. NICODERM CQ [Suspect]

REACTIONS (6)
  - APPLICATION SITE IRRITATION [None]
  - DYSGEUSIA [None]
  - ERUCTATION [None]
  - FLATULENCE [None]
  - HICCUPS [None]
  - STOMACH DISCOMFORT [None]
